FAERS Safety Report 9961540 (Version 2)
Quarter: 2014Q1

REPORT INFORMATION
  Report Type: Report from Study
  Country: US (occurrence: US)
  Receive Date: 20140305
  Receipt Date: 20140305
  Transmission Date: 20141002
  Serious: Yes (Hospitalization)
  Sender: FDA-Public Use
  Company Number: US-ACTELION-A-US2014-94770

PATIENT
  Age: 55 Year
  Sex: Female

DRUGS (3)
  1. MACITENTAN [Suspect]
     Indication: PULMONARY ARTERIAL HYPERTENSION
     Dosage: 10 MG, UNK
     Route: 048
     Dates: start: 20131221
  2. REMODULIN [Concomitant]
  3. RIOCIGUAT [Concomitant]

REACTIONS (4)
  - Pneumonia [Unknown]
  - Interstitial lung disease [Recovering/Resolving]
  - Pulmonary arterial hypertension [Recovering/Resolving]
  - Bronchitis [Recovering/Resolving]
